FAERS Safety Report 19778388 (Version 1)
Quarter: 2021Q3

REPORT INFORMATION
  Report Type: Report from Study
  Country: US (occurrence: US)
  Receive Date: 20210902
  Receipt Date: 20210902
  Transmission Date: 20211014
  Serious: Yes (Other)
  Sender: FDA-Public Use
  Company Number: US-ASTELLAS-2021US032679

PATIENT
  Sex: Male

DRUGS (7)
  1. ASP2215 [Suspect]
     Active Substance: GILTERITINIB
     Dosage: 40 MG, ONCE DAILY (1 TABLET)
     Route: 048
  2. LISINOPRIL. [Concomitant]
     Active Substance: LISINOPRIL
     Indication: PRODUCT USED FOR UNKNOWN INDICATION
     Dosage: UNK UNK, UNKNOWN FREQ.
     Route: 065
  3. ASP2215 [Suspect]
     Active Substance: GILTERITINIB
     Indication: CHRONIC LYMPHOCYTIC LEUKAEMIA
     Dosage: 80 MG, ONCE DAILY (2 MONTHS)
     Route: 048
  4. ASP2215 [Suspect]
     Active Substance: GILTERITINIB
     Route: 048
  5. ASP2215 [Suspect]
     Active Substance: GILTERITINIB
     Route: 048
  6. ASP2215 [Suspect]
     Active Substance: GILTERITINIB
     Route: 048
  7. ASP2215 [Suspect]
     Active Substance: GILTERITINIB
     Route: 048

REACTIONS (3)
  - Product use in unapproved indication [Unknown]
  - Myelosuppression [Unknown]
  - Hepatitis [Unknown]
